FAERS Safety Report 9214098 (Version 1)
Quarter: 2013Q2

REPORT INFORMATION
  Report Type: Spontaneous
  Country: US (occurrence: US)
  Receive Date: 20130405
  Receipt Date: 20130405
  Transmission Date: 20140414
  Serious: Yes (Other)
  Sender: FDA-Public Use
  Company Number: US-PFIZER INC-2013102408

PATIENT
  Sex: Female

DRUGS (1)
  1. ADVIL PM [Suspect]
     Indication: PAIN
     Dosage: UNK

REACTIONS (5)
  - Loss of consciousness [Unknown]
  - Multiple sclerosis [Unknown]
  - Nervous system disorder [Unknown]
  - Mood altered [Unknown]
  - Anger [Unknown]
